FAERS Safety Report 10740508 (Version 3)
Quarter: 2015Q2

REPORT INFORMATION
  Report Type: Spontaneous
  Country: US (occurrence: US)
  Receive Date: 20150127
  Receipt Date: 20150524
  Transmission Date: 20150821
  Serious: Yes (Other)
  Sender: FDA-Public Use
  Company Number: US-JNJFOC-20150111226

PATIENT
  Age: 61 Year
  Sex: Male
  Weight: 65.77 kg

DRUGS (3)
  1. DURAGESIC [Suspect]
     Active Substance: FENTANYL
     Indication: CANCER PAIN
     Route: 062
     Dates: start: 201501, end: 201501
  2. DURAGESIC [Suspect]
     Active Substance: FENTANYL
     Indication: CANCER PAIN
     Route: 062
     Dates: start: 201501
  3. DURAGESIC [Suspect]
     Active Substance: FENTANYL
     Indication: CANCER PAIN
     Route: 062
     Dates: start: 201111

REACTIONS (7)
  - Bone cancer metastatic [Unknown]
  - Drug effect increased [Unknown]
  - Incorrect dose administered [Unknown]
  - Overdose [Not Recovered/Not Resolved]
  - Pruritus [Recovered/Resolved]
  - Drug dose omission [Unknown]
  - Intercepted drug dispensing error [Unknown]

NARRATIVE: CASE EVENT DATE: 201501
